FAERS Safety Report 20391264 (Version 1)
Quarter: 2022Q1

REPORT INFORMATION
  Report Type: Spontaneous
  Country: US (occurrence: None)
  Receive Date: 20220127
  Receipt Date: 20220127
  Transmission Date: 20220423
  Serious: Yes (Life-Threatening)
  Sender: FDA-Public Use
  Company Number: None

PATIENT
  Age: 41 Year
  Sex: Female
  Weight: 71.55 kg

DRUGS (1)
  1. FENTANYL TRANSDERMAL SYSTEM [Suspect]
     Active Substance: FENTANYL
     Indication: Pain
     Dosage: OTHER QUANTITY : 1 PATCH(ES);?OTHER FREQUENCY : EVERY 48 HOURS;?
     Route: 061
     Dates: start: 20220119, end: 20220127

REACTIONS (11)
  - Product physical issue [None]
  - Vomiting [None]
  - Feeling abnormal [None]
  - Depressed level of consciousness [None]
  - Overdose [None]
  - Dizziness [None]
  - Product physical issue [None]
  - Product physical consistency issue [None]
  - Manufacturing production issue [None]
  - Manufacturing equipment issue [None]
  - Product complaint [None]

NARRATIVE: CASE EVENT DATE: 20220127
